FAERS Safety Report 8284900-0 (Version None)
Quarter: 2012Q2

REPORT INFORMATION
  Report Type: 
  Country: None (occurrence: None)
  Receive Date: 20120413
  Receipt Date: 20110909
  Transmission Date: 20120825
  Serious: No
  Sender: FDA-Public Use
  Company Number: US-ASTRAZENECA-2010SE32357

PATIENT
  Age: 11535 Day
  Sex: Female

DRUGS (1)
  1. NEXIUM [Suspect]
     Indication: DYSPEPSIA
     Route: 048

REACTIONS (5)
  - WEIGHT DECREASED [None]
  - DYSPEPSIA [None]
  - EATING DISORDER [None]
  - APHAGIA [None]
  - DRUG DOSE OMISSION [None]
